FAERS Safety Report 16581662 (Version 1)
Quarter: 2019Q3

REPORT INFORMATION
  Report Type: Spontaneous
  Country: CN (occurrence: CN)
  Receive Date: 20190716
  Receipt Date: 20190716
  Transmission Date: 20191004
  Serious: Yes (Hospitalization, Other)
  Sender: FDA-Public Use
  Company Number: CN-BAXTER-2019BAX013748

PATIENT
  Age: 65 Year
  Sex: Female
  Weight: 67.5 kg

DRUGS (15)
  1. METHOTREXATE. [Suspect]
     Active Substance: METHOTREXATE
     Dosage: CODOX-M REGIMEN
     Route: 065
     Dates: start: 20190613, end: 20190613
  2. FUNENG (CALCIUM FOLINATE) [Suspect]
     Active Substance: LEUCOVORIN CALCIUM
     Indication: PROPHYLAXIS
     Dosage: CODOX-M REGIMEN, CALCIUM FOLINATE 25 MG + 0.9% NS 50 ML, 4 TIMES A DAY
     Route: 042
     Dates: start: 20190618, end: 20190620
  3. SODIUM CHLORIDE. [Suspect]
     Active Substance: SODIUM CHLORIDE
     Indication: MEDICATION DILUTION
     Dosage: VINDESINE SULFATE 5MG + 0.9% NS 20 ML
     Route: 042
     Dates: start: 20190613, end: 20190613
  4. RUIXIEXIN [Concomitant]
     Indication: PRODUCT USED FOR UNKNOWN INDICATION
     Route: 058
     Dates: start: 201906
  5. ENDOXAN [Suspect]
     Active Substance: CYCLOPHOSPHAMIDE
     Indication: NON-HODGKIN^S LYMPHOMA
     Dosage: CODOX-M REGIMEN, CYCLOPHOSPHAMIDE 0.6G + 0.9% NS 250 ML
     Route: 041
     Dates: start: 20190613, end: 20190615
  6. METHOTREXATE. [Suspect]
     Active Substance: METHOTREXATE
     Dosage: CODOX-M REGIMEN, METHOTREXATE 4.5 G + 5% GS 1000 ML
     Route: 041
     Dates: start: 20190617, end: 20190617
  7. SODIUM CHLORIDE. [Suspect]
     Active Substance: SODIUM CHLORIDE
     Dosage: CODOX-M REGIMEN, CYCLOPHOSPHAMIDE 0.6G + 0.9% NS 250 ML
     Route: 041
     Dates: start: 20190613, end: 20190615
  8. GLUCOSE [Suspect]
     Active Substance: DEXTROSE
     Indication: MEDICATION DILUTION
     Dosage: CODOX-M REGIMEN, METHOTREXATE 4.5 G + 5% GS 1000 ML
     Route: 041
     Dates: start: 20190617, end: 20190617
  9. SODIUM CHLORIDE. [Suspect]
     Active Substance: SODIUM CHLORIDE
     Indication: MEDICATION DILUTION
     Dosage: CODOX-M REGIMEN, EPIRUBICIN 90MG + 0.9% NS 100 ML
     Route: 041
     Dates: start: 20190613, end: 20190613
  10. 0.9% SODIUM CHLORIDE INJECTION [Suspect]
     Active Substance: SODIUM CHLORIDE
     Indication: MEDICATION DILUTION
     Dosage: CALCIUM FOLINATE 25 MG + 0.9% NS 50 ML
     Route: 042
     Dates: start: 20190618, end: 20190620
  11. PHARMORUBICIN?RD [Suspect]
     Active Substance: EPIRUBICIN HYDROCHLORIDE
     Indication: NON-HODGKIN^S LYMPHOMA
     Dosage: CODOX-M REGIMEN, EPIRUBICIN 90MG + 0.9% NS 100 ML
     Route: 041
     Dates: start: 20190613, end: 20190613
  12. PREDNISONE ACETATE [Suspect]
     Active Substance: PREDNISONE ACETATE
     Indication: NON-HODGKIN^S LYMPHOMA
     Dosage: TABLET, CODOX-M REGIMEN
     Route: 048
     Dates: start: 20190613, end: 20190617
  13. VINDESINE SULFATE [Suspect]
     Active Substance: VINDESINE SULFATE
     Indication: NON-HODGKIN^S LYMPHOMA
     Dosage: CODOX-M REGIMEN, VINDESINE 5MG + 0.9% NS 20 ML
     Route: 042
     Dates: start: 20190613, end: 20190613
  14. GLUCOSE [Suspect]
     Active Substance: DEXTROSE
     Dosage: CODOX-M REGIMEN, METHOTREXATE 1.9 G + 5% GS 250 ML
     Route: 041
     Dates: start: 20190617, end: 20190617
  15. METHOTREXATE. [Suspect]
     Active Substance: METHOTREXATE
     Indication: NON-HODGKIN^S LYMPHOMA
     Dosage: CODOX-M REGIMEN, METHOTREXATE 1.9 G + 5% GS 250 ML
     Route: 041
     Dates: start: 20190617, end: 20190617

REACTIONS (4)
  - Leukopenia [Recovering/Resolving]
  - Bone marrow failure [Unknown]
  - Thrombocytopenia [Recovering/Resolving]
  - Neutropenia [Recovering/Resolving]

NARRATIVE: CASE EVENT DATE: 20190621
